FAERS Safety Report 8504234-6 (Version None)
Quarter: 2012Q3

REPORT INFORMATION
  Report Type: 
  Country: None (occurrence: None)
  Receive Date: 20120711
  Receipt Date: 20120706
  Transmission Date: 20120928
  Serious: Yes (Death)
  Sender: FDA-Public Use
  Company Number: US-GILEAD-2012-0054802

PATIENT
  Sex: Female

DRUGS (6)
  1. BACTRIM [Concomitant]
     Indication: PROPHYLAXIS
  2. AZITHROMYCIN [Concomitant]
     Indication: PROPHYLAXIS
     Dosage: 1200 MG, Q1WK
     Route: 048
  3. EFAVIRENZ/EMTRICITABINE/TENOFOVIR DISOPROXIL FUMARATE [Suspect]
     Indication: HIV INFECTION
     Dosage: 1100 MG, QD
     Route: 048
     Dates: start: 20111011, end: 20120429
  4. LANTUS [Concomitant]
     Indication: DIABETES MELLITUS
  5. MULTIPLE VITAMINS [Concomitant]
     Indication: SUPPLEMENTATION THERAPY
  6. LOSARTAN POTASSIUM [Concomitant]
     Indication: HYPERTENSION

REACTIONS (1)
  - RENAL FAILURE [None]
